FAERS Safety Report 13667933 (Version 1)
Quarter: 2017Q2

REPORT INFORMATION
  Report Type: Spontaneous
  Country: US (occurrence: US)
  Receive Date: 20170619
  Receipt Date: 20170619
  Transmission Date: 20170830
  Serious: No
  Sender: FDA-Public Use
  Company Number: None

PATIENT
  Age: 55 Year
  Sex: Female
  Weight: 71.1 kg

DRUGS (2)
  1. WOMENS 50+ MULTI-VITAMIN [Concomitant]
  2. AZITHROMYCIN 500 MG [Suspect]
     Active Substance: AZITHROMYCIN ANHYDROUS
     Indication: SINUSITIS
     Dosage: ?          QUANTITY:5 TABLET(S);?
     Route: 048
     Dates: start: 20170531, end: 20170604

REACTIONS (7)
  - Muscle tightness [None]
  - Neuropathy peripheral [None]
  - Hypoaesthesia [None]
  - Peripheral coldness [None]
  - Arthropathy [None]
  - Paraesthesia [None]
  - Balance disorder [None]

NARRATIVE: CASE EVENT DATE: 20170605
